FAERS Safety Report 8090994-8 (Version None)
Quarter: 2012Q1

REPORT INFORMATION
  Report Type: 
  Country: None (occurrence: None)
  Receive Date: 20120128
  Receipt Date: 20110809
  Transmission Date: 20120608
  Serious: No
  Sender: FDA-Public Use
  Company Number: US-ABBOTT-11P-163-0845204-00

PATIENT
  Sex: Female
  Weight: 68.1 kg

DRUGS (4)
  1. HUMIRA [Suspect]
     Indication: RHEUMATOID ARTHRITIS
     Dates: start: 20110601
  2. ULTRAM [Concomitant]
     Indication: RHEUMATOID ARTHRITIS
  3. EXTRA STRENGTH TYLENOL [Concomitant]
     Indication: RHEUMATOID ARTHRITIS
  4. VITAMIN TAB [Concomitant]
     Indication: PRODUCT USED FOR UNKNOWN INDICATION

REACTIONS (2)
  - INJECTION SITE URTICARIA [None]
  - INJECTION SITE PRURITUS [None]
